FAERS Safety Report 5577896-3 (Version None)
Quarter: 2007Q4

REPORT INFORMATION
  Report Type: 
  Country: None (occurrence: None)
  Receive Date: 20071231
  Receipt Date: 20071218
  Transmission Date: 20080405
  Serious: Yes (Hospitalization)
  Sender: FDA-Public Use
  Company Number: ES-ELI_LILLY_AND_COMPANY-ES200712003812

PATIENT
  Age: 69 Year
  Sex: Female

DRUGS (6)
  1. FORTEO [Suspect]
     Indication: OSTEOPOROSIS
     Dosage: 20 UG, UNKNOWN
     Route: 058
     Dates: start: 20060401, end: 20071001
  2. CORTICOSTEROIDS [Concomitant]
     Dosage: UNK, UNKNOWN
  3. ANTIHYPERTENSIVES [Concomitant]
     Indication: HYPERTENSION
     Dosage: UNK, UNKNOWN
  4. MORPHINE [Concomitant]
     Indication: PAIN
     Dosage: UNK, UNKNOWN
  5. LYRICA [Concomitant]
     Dosage: UNK, UNKNOWN
  6. ANTIDEPRESSANTS [Concomitant]
     Indication: DEPRESSION
     Dosage: UNK, UNKNOWN

REACTIONS (3)
  - PAIN [None]
  - RESPIRATORY FAILURE [None]
  - WEIGHT DECREASED [None]
